FAERS Safety Report 22072818 (Version 3)
Quarter: 2023Q2

REPORT INFORMATION
  Report Type: Spontaneous
  Country: CA (occurrence: CA)
  Receive Date: 20230308
  Receipt Date: 20230407
  Transmission Date: 20230722
  Serious: Yes (Hospitalization)
  Sender: FDA-Public Use
  Company Number: CA-VIIV HEALTHCARE LIMITED-CA2023AMR033826

PATIENT
  Age: 47 Year
  Sex: Male

DRUGS (3)
  1. RILPIVIRINE [Suspect]
     Active Substance: RILPIVIRINE
     Indication: HIV infection
     Dosage: UNK, Z, 3ML/600 MG, EVERY 2 MONTHS
     Route: 030
     Dates: start: 20220810
  2. CABOTEGRAVIR [Suspect]
     Active Substance: CABOTEGRAVIR
     Indication: HIV infection
     Dosage: UNK, Z, 3ML/600 MG, EVERY 2 MONTHS
     Route: 030
     Dates: start: 20220810
  3. DOXYCYCLINE [Concomitant]
     Active Substance: DOXYCYCLINE
     Indication: Anorectal infection
     Dosage: UNK
     Dates: end: 20230114

REACTIONS (3)
  - Cyanosis [Unknown]
  - Diarrhoea [Not Recovered/Not Resolved]
  - Limb injury [Unknown]

NARRATIVE: CASE EVENT DATE: 20230108
